FAERS Safety Report 9517950 (Version 1)
Quarter: 2013Q3

REPORT INFORMATION
  Report Type: Spontaneous
  Country: US (occurrence: US)
  Receive Date: 20130912
  Receipt Date: 20130912
  Transmission Date: 20140515
  Serious: Yes (Other)
  Sender: FDA-Public Use
  Company Number: US-PFIZER INC-2013261422

PATIENT
  Age: 18 Year
  Sex: Female

DRUGS (4)
  1. GABAPENTIN [Suspect]
     Dosage: UNK
  2. LYRICA [Suspect]
     Indication: MUSCLE TIGHTNESS
     Dosage: 50 MG, 1X/DAY
  3. LYRICA [Suspect]
     Indication: HYPOAESTHESIA
  4. LYRICA [Suspect]
     Indication: PARAESTHESIA

REACTIONS (5)
  - Off label use [Unknown]
  - Depression [Unknown]
  - Anxiety [Unknown]
  - Joint swelling [Unknown]
  - Drug ineffective for unapproved indication [Unknown]
